FAERS Safety Report 7874793-5 (Version None)
Quarter: 2011Q4

REPORT INFORMATION
  Report Type: 
  Country: None (occurrence: None)
  Receive Date: 20111031
  Receipt Date: 20111018
  Transmission Date: 20120403
  Serious: Yes (Other)
  Sender: FDA-Public Use
  Company Number: US-JNJFOC-20111008896

PATIENT
  Sex: Female

DRUGS (2)
  1. LUBRIDERM DAILY MOISTURE WITH SPF 15 [Suspect]
     Indication: THERAPEUTIC SKIN CARE TOPICAL
     Dosage: APPLIED A LOT WHENEVER NEEDED FOR15 YEARS.
     Route: 061
     Dates: start: 19960101
  2. LUBRIDERM DAILY MOISTURE WITH SPF 15 [Suspect]
     Indication: PROPHYLAXIS AGAINST SOLAR RADIATION
     Dosage: APPLIED A LOT WHENEVER NEEDED FOR15 YEARS.
     Route: 061
     Dates: start: 19960101

REACTIONS (3)
  - BREAST CANCER [None]
  - PRODUCT QUALITY ISSUE [None]
  - SKIN CANCER [None]
